FAERS Safety Report 9007030 (Version 2)
Quarter: 2013Q1

REPORT INFORMATION
  Report Type: Spontaneous
  Country: GB (occurrence: GB)
  Receive Date: 20130110
  Receipt Date: 20130304
  Transmission Date: 20140127
  Serious: Yes (Hospitalization, Other)
  Sender: FDA-Public Use
  Company Number: GB-JNJFOC-20130103140

PATIENT
  Age: 3 Year
  Sex: Male

DRUGS (1)
  1. CONCERTA XL [Suspect]
     Indication: ACCIDENTAL EXPOSURE TO PRODUCT
     Dosage: ONE OR TWO TABLETS
     Route: 048

REACTIONS (3)
  - Hypertension [Unknown]
  - Accidental exposure to product by child [Unknown]
  - Failure of child resistant mechanism for pharmaceutical product [Unknown]
